FAERS Safety Report 5670687-4 (Version None)
Quarter: 2008Q2

REPORT INFORMATION
  Report Type: 
  Country: None (occurrence: None)
  Receive Date: 20080305
  Receipt Date: 20070227
  Transmission Date: 20081010
  Serious: Yes (Other)
  Sender: FDA-Public Use
  Company Number: BDI-006468

PATIENT
  Sex: Female

DRUGS (1)
  1. ISOVUE-250 [Suspect]
     Indication: COMPUTERISED TOMOGRAM THORAX
     Dosage: ONCE INTRAVENOUS
     Route: 042
     Dates: start: 20040217, end: 20040217

REACTIONS (2)
  - MALAISE [None]
  - RESPIRATORY DISTRESS [None]
